FAERS Safety Report 6595842-0 (Version None)
Quarter: 2010Q1

REPORT INFORMATION
  Report Type: 
  Country: None (occurrence: None)
  Receive Date: 20100223
  Receipt Date: 20100121
  Transmission Date: 20100710
  Serious: Yes (Other)
  Sender: FDA-Public Use
  Company Number: JP-BAYER-200811977BYL

PATIENT
  Age: 69 Year
  Sex: Male
  Weight: 46 kg

DRUGS (14)
  1. NEXAVAR [Suspect]
     Indication: RENAL CELL CARCINOMA
     Dosage: TOTAL DAILY DOSE: 800 MG  UNIT DOSE: 200 MG
     Route: 048
     Dates: start: 20080616, end: 20080630
  2. NEXAVAR [Suspect]
     Dosage: UNIT DOSE: 200 MG
     Route: 048
     Dates: start: 20080701, end: 20080707
  3. NEXAVAR [Suspect]
     Dosage: UNIT DOSE: 200 MG
     Route: 048
     Dates: start: 20080708, end: 20080821
  4. NEXAVAR [Suspect]
     Route: 048
     Dates: end: 20081208
  5. NEXAVAR [Suspect]
     Dosage: UNIT DOSE: 200 MG
     Route: 048
     Dates: start: 20090119, end: 20090201
  6. NEXAVAR [Suspect]
     Dosage: UNIT DOSE: 200 MG
     Route: 048
     Dates: start: 20090219, end: 20090324
  7. NEXAVAR [Suspect]
     Dosage: UNIT DOSE: 200 MG
     Route: 048
     Dates: start: 20090413
  8. NEXAVAR [Suspect]
     Dosage: UNIT DOSE: 200 MG
     Route: 048
     Dates: start: 20090202, end: 20090204
  9. NEXAVAR [Suspect]
     Dosage: UNIT DOSE: 200 MG
     Route: 048
     Dates: start: 20081223, end: 20090108
  10. SELBEX [Concomitant]
     Indication: PROPHYLAXIS
     Route: 048
     Dates: start: 20080731
  11. PLAVIX [Concomitant]
     Route: 048
     Dates: start: 20090609, end: 20090713
  12. ASPIRIN [Concomitant]
     Dosage: UNIT DOSE: 100 MG
     Route: 048
     Dates: start: 20090714
  13. NORVASC [Concomitant]
     Dosage: BEFORE NEXAVAR ADMINISTRATION
     Route: 048
  14. OLMETEC [Concomitant]
     Dosage: BEFORE NEXAVAR ADMINISTRATION
     Route: 048

REACTIONS (12)
  - BLOOD AMYLASE INCREASED [None]
  - BLOOD LACTATE DEHYDROGENASE INCREASED [None]
  - CATARACT [None]
  - DUODENAL ULCER [None]
  - HYPOTHYROIDISM [None]
  - LIPASE INCREASED [None]
  - LIVER FUNCTION TEST ABNORMAL [None]
  - MYALGIA [None]
  - PALMAR-PLANTAR ERYTHRODYSAESTHESIA SYNDROME [None]
  - PLATELET COUNT DECREASED [None]
  - RENAL FUNCTION TEST ABNORMAL [None]
  - STOMATITIS [None]
